FAERS Safety Report 8984834 (Version 2)
Quarter: 2013Q1

REPORT INFORMATION
  Report Type: Spontaneous
  Country: BR (occurrence: BR)
  Receive Date: 20121226
  Receipt Date: 20130225
  Transmission Date: 20140127
  Serious: Yes (Other)
  Sender: FDA-Public Use
  Company Number: PHHY2012BR119141

PATIENT
  Sex: Female

DRUGS (2)
  1. DIOVAN [Suspect]
     Indication: HYPERTENSION
     Dosage: 1 DF (320 MG) QD
     Route: 048
     Dates: end: 201211
  2. DIOVAN [Suspect]
     Dosage: 2 DF(160 MG) QD
     Route: 048
     Dates: start: 201211, end: 20130218

REACTIONS (3)
  - Gastric haemorrhage [Recovered/Resolved]
  - Cardiovascular disorder [Recovering/Resolving]
  - Varicose vein [Recovering/Resolving]
